FAERS Safety Report 23326682 (Version 1)
Quarter: 2023Q4

REPORT INFORMATION
  Report Type: Spontaneous
  Country: US (occurrence: US)
  Receive Date: 20231221
  Receipt Date: 20231221
  Transmission Date: 20240109
  Serious: No
  Sender: FDA-Public Use
  Company Number: US-PFIZER INC-202300444917

PATIENT
  Age: 70 Year
  Sex: Female

DRUGS (5)
  1. IBRANCE [Suspect]
     Active Substance: PALBOCICLIB
     Dosage: DAILY, 3 WEEKS ON, ONE WEEK OFF
     Dates: start: 20231118
  2. FENTANYL [Concomitant]
     Active Substance: FENTANYL\FENTANYL CITRATE
  3. OXYCODONE [Concomitant]
     Active Substance: OXYCODONE
  4. LETROZOLE [Concomitant]
     Active Substance: LETROZOLE
  5. VYVANSE [Concomitant]
     Active Substance: LISDEXAMFETAMINE DIMESYLATE

REACTIONS (2)
  - Fatigue [Recovering/Resolving]
  - Nausea [Recovering/Resolving]
